FAERS Safety Report 21192369 (Version 2)
Quarter: 2022Q3

REPORT INFORMATION
  Report Type: Spontaneous
  Country: US (occurrence: US)
  Receive Date: 20220809
  Receipt Date: 20220922
  Transmission Date: 20221026
  Serious: Yes (Other)
  Sender: FDA-Public Use
  Company Number: US-009507513-2208USA001944

PATIENT
  Age: 71 Year
  Sex: Female
  Weight: 109.3 kg

DRUGS (17)
  1. JANUVIA [Suspect]
     Active Substance: SITAGLIPTIN PHOSPHATE
     Indication: Diabetes mellitus
     Dosage: 100 MILLIGRAM, ONCE, DAILY IN THE MORNING
     Route: 048
  2. METFORMIN [Concomitant]
     Active Substance: METFORMIN HYDROCHLORIDE
  3. GLIPIZIDE [Concomitant]
     Active Substance: GLIPIZIDE
  4. ALPHA LIPOIC ACID [Concomitant]
     Active Substance: .ALPHA.-LIPOIC ACID
     Dosage: 300 MG BY MOUTH DAILY
     Route: 048
  5. NORVASC [Concomitant]
     Active Substance: AMLODIPINE BESYLATE
     Dosage: TAKE 1 TABLET (10 MG TOTAL) BY MOUTH DAILY
     Route: 048
     Dates: start: 20220228
  6. VITAMIN C [Concomitant]
     Active Substance: ASCORBIC ACID
     Dosage: 500 MG BY MOUTH DAILY
     Route: 048
  7. VITAMIN D3 [Concomitant]
     Active Substance: CHOLECALCIFEROL
     Dosage: 5000 UNITS BY MOUTH DAILY
     Route: 048
  8. PLAVIX [Concomitant]
     Active Substance: CLOPIDOGREL BISULFATE
     Dosage: 1 TABLET (75 MG TOTAL) BY MOUTH DAILY
     Route: 048
     Dates: start: 20211208
  9. COD LIVER OIL [Concomitant]
     Active Substance: COD LIVER OIL
     Dosage: 1000 MG BY MOUTH DAILY
     Route: 048
  10. DIETARY SUPPLEMENT\UBIDECARENONE [Concomitant]
     Active Substance: DIETARY SUPPLEMENT\UBIDECARENONE
     Dosage: 100 MG BY MOUTH DAILY
  11. GLUCOTROL XL [Concomitant]
     Active Substance: GLIPIZIDE
     Dosage: 1 TABLET (10 MG TOTAL) BY MOUTH DAILY
     Route: 048
     Dates: start: 20220428
  12. GUAIFENESIN [Concomitant]
     Active Substance: GUAIFENESIN
     Dosage: 400 MG BY MOUTH DAILY
     Route: 048
  13. HORSE CHESTNUT [AESCULUS HIPPOCASTANUM SEED] [Concomitant]
     Dosage: BY MOUTH
     Route: 048
  14. ATARAX [Concomitant]
     Active Substance: HYDROXYZINE HYDROCHLORIDE
     Dosage: 1 TABLET (25 MG TOTAL) BY MOUTH EVERY 6 (SIX) HOURS AS NEEDED FOR ITCHING
     Route: 048
     Dates: start: 20210618
  15. GLUCOPHAGE [Concomitant]
     Active Substance: METFORMIN HYDROCHLORIDE
     Dosage: 2 TABLETS BY MOUTH TWICE DAILY
     Route: 048
     Dates: start: 20220117
  16. PROTONIX [Concomitant]
     Active Substance: PANTOPRAZOLE SODIUM
     Dosage: 1 TABLET BY MOUTH DAILY
     Route: 048
     Dates: start: 20220102
  17. TURMERIC [Concomitant]
     Active Substance: TURMERIC
     Dosage: TAKE BY MOUTH
     Route: 048

REACTIONS (27)
  - Barrett^s oesophagus [Unknown]
  - Glaucoma [Unknown]
  - Neuropathy peripheral [Unknown]
  - Urinary retention [Recovered/Resolved]
  - Cardiac perfusion defect [Unknown]
  - Diabetes mellitus inadequate control [Unknown]
  - Hip arthroplasty [Unknown]
  - Knee arthroplasty [Unknown]
  - Obesity [Unknown]
  - Normocytic anaemia [Unknown]
  - Acute sinusitis [Unknown]
  - Dyspnoea [Unknown]
  - Essential hypertension [Unknown]
  - Hyperlipidaemia [Unknown]
  - Emphysema [Unknown]
  - Obstructive sleep apnoea syndrome [Unknown]
  - Coronary artery disease [Unknown]
  - Obesity [Recovered/Resolved]
  - Osteoarthritis [Unknown]
  - Osteoarthritis [Unknown]
  - Blood glucose increased [Not Recovered/Not Resolved]
  - Dizziness [Not Recovered/Not Resolved]
  - Gastrooesophageal reflux disease [Unknown]
  - Back pain [Unknown]
  - Pruritus [Unknown]
  - Product use issue [Unknown]
  - Product dose omission issue [Unknown]

NARRATIVE: CASE EVENT DATE: 20150226
